FAERS Safety Report 6881800-5 (Version None)
Quarter: 2010Q3

REPORT INFORMATION
  Report Type: 
  Country: None (occurrence: None)
  Receive Date: 20100729
  Receipt Date: 20100720
  Transmission Date: 20110219
  Serious: Yes (Hospitalization)
  Sender: FDA-Public Use
  Company Number: DK-PFIZER INC-2010057631

PATIENT
  Age: 62 Year
  Sex: Male
  Weight: 75 kg

DRUGS (2)
  1. CHAMPIX [Suspect]
     Indication: SMOKING CESSATION THERAPY
     Dosage: UNK
     Route: 048
     Dates: start: 20100321, end: 20100324
  2. ENALAPRIL [Concomitant]
     Dosage: UNK
     Dates: start: 20090101

REACTIONS (4)
  - DIZZINESS [None]
  - FATIGUE [None]
  - SPEECH DISORDER [None]
  - VOMITING [None]
